FAERS Safety Report 18527855 (Version 5)
Quarter: 2022Q1

REPORT INFORMATION
  Report Type: Spontaneous
  Country: US (occurrence: US)
  Receive Date: 20201120
  Receipt Date: 20220211
  Transmission Date: 20220423
  Serious: Yes (Hospitalization, Other)
  Sender: FDA-Public Use
  Company Number: US-ELI_LILLY_AND_COMPANY-US202011005327

PATIENT
  Age: 66 Year
  Sex: Female

DRUGS (3)
  1. HUMALOG [Suspect]
     Active Substance: INSULIN LISPRO
     Indication: Type 2 diabetes mellitus
     Dosage: 100 U, DAILY
     Route: 058
  2. HUMALOG [Suspect]
     Active Substance: INSULIN LISPRO
     Dosage: 100 U, DAILY
     Route: 058
  3. HUMALOG [Suspect]
     Active Substance: INSULIN LISPRO
     Dosage: 100 U, OTHER (EVERY THREE DAYS)
     Route: 058

REACTIONS (12)
  - Norovirus infection [Unknown]
  - Post procedural inflammation [Unknown]
  - Fluid retention [Unknown]
  - Cataract [Unknown]
  - Eye disorder [Unknown]
  - Fall [Recovering/Resolving]
  - Facial bones fracture [Recovering/Resolving]
  - Nasopharyngitis [Unknown]
  - Epistaxis [Recovering/Resolving]
  - Gait disturbance [Unknown]
  - Dysstasia [Unknown]
  - Hypersensitivity [Unknown]

NARRATIVE: CASE EVENT DATE: 20201001
